FAERS Safety Report 13822764 (Version 1)
Quarter: 2017Q3

REPORT INFORMATION
  Report Type: Spontaneous
  Country: JP (occurrence: JP)
  Receive Date: 20170801
  Receipt Date: 20170801
  Transmission Date: 20171127
  Serious: Yes (Hospitalization)
  Sender: FDA-Public Use
  Company Number: PHJP2017JP024356

PATIENT
  Sex: Female

DRUGS (4)
  1. ZONISAMIDE. [Concomitant]
     Active Substance: ZONISAMIDE
     Indication: TEMPORAL LOBE EPILEPSY
     Dosage: UNK
     Route: 065
  2. CLOBAZAM [Concomitant]
     Active Substance: CLOBAZAM
     Indication: TEMPORAL LOBE EPILEPSY
     Dosage: UNK
     Route: 065
  3. CARBAMAZEPINE. [Suspect]
     Active Substance: CARBAMAZEPINE
     Indication: TEMPORAL LOBE EPILEPSY
     Dosage: UNK
     Route: 065
  4. PHENYTOIN. [Concomitant]
     Active Substance: PHENYTOIN
     Indication: TEMPORAL LOBE EPILEPSY
     Dosage: UNK
     Route: 065

REACTIONS (8)
  - White blood cell count decreased [Unknown]
  - Polydipsia [Unknown]
  - Hyponatraemia [Unknown]
  - Altered state of consciousness [Unknown]
  - Epileptic psychosis [Unknown]
  - Persecutory delusion [Unknown]
  - Therapeutic response decreased [Unknown]
  - Hallucination, auditory [Unknown]
